FAERS Safety Report 11194335 (Version 1)
Quarter: 2015Q2

REPORT INFORMATION
  Report Type: Spontaneous
  Country: US (occurrence: US)
  Receive Date: 20150616
  Receipt Date: 20150616
  Transmission Date: 20150821
  Serious: No
  Sender: FDA-Public Use
  Company Number: US-B.I. PHARMACEUTICALS,INC./RIDGEFIELD-2015-BI-30232BP

PATIENT
  Age: 56 Year
  Sex: Male
  Weight: 114 kg

DRUGS (1)
  1. JARDIANCE [Suspect]
     Active Substance: EMPAGLIFLOZIN
     Indication: DIABETES MELLITUS
     Dosage: 25 MG
     Route: 048
     Dates: start: 20150505

REACTIONS (3)
  - Constipation [Unknown]
  - Abnormal loss of weight [Unknown]
  - Increased appetite [Unknown]

NARRATIVE: CASE EVENT DATE: 20150505
